FAERS Safety Report 5229369-5 (Version None)
Quarter: 2007Q1

REPORT INFORMATION
  Report Type: 
  Country: None (occurrence: None)
  Receive Date: 20061201
  Receipt Date: 20060912
  Transmission Date: 20070707
  Serious: No
  Sender: FDA-Public Use
  Company Number: 2006PV021097

PATIENT
  Age: 62 Year
  Sex: Female
  Weight: 95.2554 kg

DRUGS (7)
  1. BYETTA [Suspect]
     Indication: DIABETES MELLITUS NON-INSULIN-DEPENDENT
     Dosage: SEE IMAGE
     Route: 058
     Dates: start: 20051201, end: 20060101
  2. BYETTA [Suspect]
     Indication: DIABETES MELLITUS NON-INSULIN-DEPENDENT
     Dosage: SEE IMAGE
     Route: 058
     Dates: start: 20060101
  3. LIPITOR [Suspect]
     Indication: BLOOD CHOLESTEROL
     Dates: start: 20060901, end: 20060901
  4. ZETIA [Suspect]
     Indication: BLOOD CHOLESTEROL
     Dates: start: 20060906, end: 20060910
  5. METFORMIN HCL [Concomitant]
  6. AMARYL [Concomitant]
  7. ZETIA [Concomitant]

REACTIONS (6)
  - ALLERGIC SINUSITIS [None]
  - BLOOD TRIGLYCERIDES INCREASED [None]
  - DRUG ERUPTION [None]
  - MUSCLE SPASMS [None]
  - NEURALGIA [None]
  - WEIGHT DECREASED [None]
